FAERS Safety Report 9626793 (Version 2)
Quarter: 2013Q4

REPORT INFORMATION
  Report Type: Spontaneous
  Country: DE (occurrence: DE)
  Receive Date: 20131016
  Receipt Date: 20131206
  Transmission Date: 20140711
  Serious: Yes (Life-Threatening, Hospitalization)
  Sender: FDA-Public Use
  Company Number: DE-GLAXOSMITHKLINE-D0081383A

PATIENT
  Age: 43 Year
  Sex: Female
  Weight: 77 kg

DRUGS (9)
  1. TYVERB [Suspect]
     Indication: METASTATIC NEOPLASM
     Dosage: 1250MG PER DAY
     Route: 048
     Dates: start: 201307, end: 201309
  2. HERCEPTIN [Concomitant]
     Indication: METASTATIC NEOPLASM
     Dosage: 462MG EVERY 3 WEEKS
     Route: 042
     Dates: start: 2013
  3. IBANDRONATE [Concomitant]
     Dosage: 6MG EVERY 3 WEEKS
     Route: 048
  4. RAMIPRIL [Concomitant]
     Dosage: 10MG IN THE MORNING
     Route: 048
  5. PANTOZOL [Concomitant]
     Dosage: 40MG AT NIGHT
     Route: 048
  6. DEXAMETHASON [Concomitant]
     Dosage: 4MG THREE TIMES PER DAY
     Route: 048
  7. NOVALGIN [Concomitant]
     Dosage: 40DROP THREE TIMES PER DAY
     Route: 048
  8. CLEXANE [Concomitant]
     Dosage: .4ML PER DAY
     Route: 058
  9. KEPPRA [Concomitant]
     Dosage: 750MG TWICE PER DAY
     Route: 048

REACTIONS (3)
  - Cerebral haemorrhage [Recovered/Resolved]
  - Epilepsy [Recovered/Resolved]
  - Headache [Recovered/Resolved]
